FAERS Safety Report 8466532-4 (Version None)
Quarter: 2012Q2

REPORT INFORMATION
  Report Type: 
  Country: None (occurrence: None)
  Receive Date: 20120626
  Receipt Date: 20120618
  Transmission Date: 20120825
  Serious: Yes (Death)
  Sender: FDA-Public Use
  Company Number: US-PFIZER INC-2012148560

PATIENT
  Age: 57 Year
  Sex: Female

DRUGS (9)
  1. QUETIAPINE FUMARATE [Suspect]
  2. MEMANTINE HCL [Suspect]
  3. DIPHENHYDRAMINE HCL [Suspect]
  4. CITALOPRAM [Suspect]
  5. ETHANOL [Suspect]
  6. KEPPRA [Suspect]
  7. LAMOTRIGINE [Suspect]
  8. VERAPAMIL HCL [Suspect]
  9. TRAZODONE HCL [Suspect]

REACTIONS (2)
  - COMPLETED SUICIDE [None]
  - TOXICITY TO VARIOUS AGENTS [None]
